FAERS Safety Report 6370798-4 (Version None)
Quarter: 2009Q3

REPORT INFORMATION
  Report Type: 
  Country: None (occurrence: None)
  Receive Date: 20090923
  Receipt Date: 20090710
  Transmission Date: 20100115
  Serious: Yes (Other)
  Sender: FDA-Public Use
  Company Number: US-ASTRAZENECA-2006UW24423

PATIENT
  Sex: Female
  Weight: 127 kg

DRUGS (10)
  1. SEROQUEL [Suspect]
     Dosage: 25MG-400 MG
     Route: 048
     Dates: start: 20040917, end: 20041213
  2. ZYPREXA [Concomitant]
     Route: 048
  3. GEODON [Concomitant]
  4. RISPERDAL [Concomitant]
  5. AMBIEN [Concomitant]
  6. GLUCOPHAGE [Concomitant]
  7. HUMALOG [Concomitant]
  8. REMERON [Concomitant]
  9. LORAZEPAM [Concomitant]
  10. TRAZODONE [Concomitant]

REACTIONS (5)
  - BLOOD GLUCOSE INCREASED [None]
  - DIABETES MELLITUS [None]
  - KETOACIDOSIS [None]
  - PANCREATITIS [None]
  - WEIGHT INCREASED [None]
